FAERS Safety Report 5114087-4 (Version None)
Quarter: 2006Q3

REPORT INFORMATION
  Report Type: 
  Country: None (occurrence: None)
  Receive Date: 20060925
  Receipt Date: 20060919
  Transmission Date: 20061208
  Serious: Yes (Other)
  Sender: FDA-Public Use
  Company Number: BR-GLAXOSMITHKLINE-A0621057A

PATIENT
  Age: 9 Year
  Sex: Male

DRUGS (3)
  1. AMOXIL [Suspect]
     Indication: PNEUMONIA
     Dosage: 500MG THREE TIMES PER DAY
     Route: 048
     Dates: start: 20060913
  2. LEVETIRACETAM [Concomitant]
     Dosage: 1G PER DAY
     Dates: start: 20060620
  3. OXYBUTYNIN [Concomitant]
     Dosage: 1.2ML THREE TIMES PER DAY
     Route: 048
     Dates: start: 20040901

REACTIONS (1)
  - EPILEPSY [None]
